FAERS Safety Report 8225034-0 (Version None)
Quarter: 2012Q1

REPORT INFORMATION
  Report Type: 
  Country: None (occurrence: None)
  Receive Date: 20120321
  Receipt Date: 20120314
  Transmission Date: 20120608
  Serious: No
  Sender: FDA-Public Use
  Company Number: US-BAYER-2012-025376

PATIENT
  Age: 22 Year
  Sex: Female

DRUGS (1)
  1. MIRENA [Suspect]
     Indication: POLYCYSTIC OVARIES
     Dosage: 20 ?G/D, CONT
     Route: 015
     Dates: start: 20120312

REACTIONS (1)
  - PROCEDURAL PAIN [None]
